FAERS Safety Report 24052243 (Version 4)
Quarter: 2025Q3

REPORT INFORMATION
  Report Type: Spontaneous
  Country: US (occurrence: US)
  Receive Date: 20240704
  Receipt Date: 20250924
  Transmission Date: 20251020
  Serious: No
  Sender: JOHNSON AND JOHNSON
  Company Number: US-VIIV HEALTHCARE LIMITED-US2024AMR080317

PATIENT
  Age: 43 Year
  Sex: Male

DRUGS (2)
  1. RILPIVIRINE [Suspect]
     Active Substance: RILPIVIRINE
     Indication: HIV infection
     Dosage: UNK, Q2M
     Route: 065
     Dates: start: 202311
  2. CABOTEGRAVIR [Suspect]
     Active Substance: CABOTEGRAVIR
     Indication: HIV infection
     Route: 065
     Dates: start: 202311

REACTIONS (6)
  - Pain [Not Recovered/Not Resolved]
  - Injection site discomfort [Recovering/Resolving]
  - Myalgia [Unknown]
  - Burning sensation [Not Recovered/Not Resolved]
  - Injection site pain [Not Recovered/Not Resolved]
  - Sciatica [Not Recovered/Not Resolved]

NARRATIVE: CASE EVENT DATE: 20250204
